FAERS Safety Report 8378643-2 (Version None)
Quarter: 2012Q2

REPORT INFORMATION
  Report Type: 
  Country: None (occurrence: None)
  Receive Date: 20120522
  Receipt Date: 20120216
  Transmission Date: 20120825
  Serious: No
  Sender: FDA-Public Use
  Company Number: US-ASTRAZENECA-2012SE10819

PATIENT

DRUGS (2)
  1. CELEBREX [Suspect]
     Route: 065
  2. OMEPRAZOLE [Suspect]
     Dosage: PER DAY
     Route: 048

REACTIONS (3)
  - CONDITION AGGRAVATED [None]
  - ABDOMINAL DISCOMFORT [None]
  - DRUG DOSE OMISSION [None]
